FAERS Safety Report 6017291-6 (Version None)
Quarter: 2008Q4

REPORT INFORMATION
  Report Type: 
  Country: None (occurrence: None)
  Receive Date: 20081223
  Receipt Date: 20081215
  Transmission Date: 20090506
  Serious: Yes (Hospitalization)
  Sender: FDA-Public Use
  Company Number: US-ASTRAZENECA-2008UW27229

PATIENT
  Age: 28 Year
  Sex: Male

DRUGS (8)
  1. SEROQUEL [Suspect]
     Indication: SCHIZOPHRENIA
     Route: 048
     Dates: start: 20080925, end: 20081022
  2. SEROQUEL [Suspect]
     Dosage: 600 OR 1200 MG / DAY
     Route: 048
     Dates: start: 20081023, end: 20081203
  3. RIPE [Concomitant]
     Indication: TUBERCULOSIS
     Dates: start: 20080501, end: 20081101
  4. RIFAMPIN [Concomitant]
  5. ISONIAZID [Concomitant]
  6. PYRAZINAMIDE [Concomitant]
  7. ETHAMBUTOL HYDROCHLORIDE [Concomitant]
     Indication: SUICIDAL BEHAVIOUR
  8. ETHAMBUTOL HYDROCHLORIDE [Concomitant]
     Indication: MYALGIA

REACTIONS (2)
  - BLOOD CREATINE PHOSPHOKINASE INCREASED [None]
  - HEPATIC ENZYME INCREASED [None]
